FAERS Safety Report 5711974-0 (Version None)
Quarter: 2008Q2

REPORT INFORMATION
  Report Type: 
  Country: None (occurrence: None)
  Receive Date: 20080416
  Receipt Date: 20080407
  Transmission Date: 20081010
  Serious: Yes (Congenital Anomaly, Other)
  Sender: FDA-Public Use
  Company Number: UKP08000071

PATIENT
  Sex: Female
  Weight: 1.8 kg

DRUGS (1)
  1. ASACOL [Suspect]
     Dosage: TRANSPLACENTAL
     Route: 064

REACTIONS (4)
  - FOETAL GROWTH RETARDATION [None]
  - MATERNAL DRUGS AFFECTING FOETUS [None]
  - SYNDACTYLY [None]
  - VENTRICULAR SEPTAL DEFECT [None]
